FAERS Safety Report 17051437 (Version 1)
Quarter: 2019Q4

REPORT INFORMATION
  Report Type: Report from Study
  Country: NZ (occurrence: NZ)
  Receive Date: 20191120
  Receipt Date: 20191120
  Transmission Date: 20200122
  Serious: Yes (Other)
  Sender: FDA-Public Use
  Company Number: NZ-TEVA-2019-NZ-1138519

PATIENT
  Sex: Male

DRUGS (1)
  1. RISPERIDONE. [Suspect]
     Active Substance: RISPERIDONE
     Indication: ANXIETY
     Route: 065

REACTIONS (5)
  - Dystonia [Unknown]
  - Tinnitus [Unknown]
  - Paraesthesia [Unknown]
  - Blood pressure fluctuation [Unknown]
  - Dizziness [Unknown]
